FAERS Safety Report 6762784-7 (Version None)
Quarter: 2010Q2

REPORT INFORMATION
  Report Type: 
  Country: None (occurrence: None)
  Receive Date: 20100609
  Receipt Date: 20100603
  Transmission Date: 20101027
  Serious: Yes (Life-Threatening)
  Sender: FDA-Public Use
  Company Number: B0658677A

PATIENT
  Age: 46 Year
  Sex: Female

DRUGS (4)
  1. AUGMENTIN '125' [Suspect]
     Indication: PHARYNGITIS
     Route: 048
     Dates: start: 20100225, end: 20100225
  2. IBUPROFEN [Concomitant]
     Route: 048
     Dates: start: 20100219, end: 20100225
  3. RHINOFLUIMUCIL [Concomitant]
     Route: 045
     Dates: start: 20100219, end: 20100225
  4. COUGH SYRUP [Concomitant]
     Indication: COUGH
     Route: 048
     Dates: start: 20100219

REACTIONS (6)
  - ANAPHYLACTIC REACTION [None]
  - BLOOD PRESSURE DECREASED [None]
  - DYSPNOEA [None]
  - MALAISE [None]
  - TACHYCARDIA [None]
  - URTICARIA [None]
